FAERS Safety Report 5494160-1 (Version None)
Quarter: 2007Q4

REPORT INFORMATION
  Report Type: 
  Country: None (occurrence: None)
  Receive Date: 20071024
  Receipt Date: 20071019
  Transmission Date: 20080405
  Serious: Yes (Life-Threatening)
  Sender: FDA-Public Use
  Company Number: PHBS2007NO17546

PATIENT
  Age: 56 Year
  Sex: Female

DRUGS (12)
  1. IBUX [Suspect]
     Indication: ARTHRALGIA
     Dates: start: 20070801
  2. NAPROXEN [Suspect]
     Indication: ARTHRALGIA
     Route: 048
  3. COZAAR [Suspect]
     Indication: HYPERTENSION
     Dosage: 1 DF, QD
     Route: 048
  4. DIURAL [Suspect]
     Indication: OEDEMA
     Dosage: 40 MG, QD
     Route: 048
     Dates: start: 20070828
  5. BREXIDOL [Suspect]
     Indication: ARTHRALGIA
     Route: 048
  6. PINEX FORTE [Concomitant]
     Route: 048
  7. DOXYLIN [Concomitant]
     Indication: PNEUMONIA
     Dates: start: 20070828
  8. VIVAL [Concomitant]
     Indication: ANXIETY
     Dosage: 50 MG, TID
     Route: 048
  9. NONI JUICE [Concomitant]
     Route: 048
  10. PINEX [Concomitant]
     Route: 048
  11. FENAZON-KOFFEIN [Concomitant]
     Indication: ARTHRALGIA
     Route: 048
  12. VOLTAREN [Suspect]
     Indication: ARTHRALGIA
     Dosage: 50 MG, TID
     Route: 048
     Dates: start: 20070801

REACTIONS (4)
  - DYSPNOEA [None]
  - GENERALISED OEDEMA [None]
  - HYPONATRAEMIA [None]
  - OBSTRUCTIVE AIRWAYS DISORDER [None]
